FAERS Safety Report 6331474-7 (Version None)
Quarter: 2009Q3

REPORT INFORMATION
  Report Type: 
  Country: None (occurrence: None)
  Receive Date: 20090827
  Receipt Date: 20090817
  Transmission Date: 20100115
  Serious: Yes (Hospitalization, Other)
  Sender: FDA-Public Use
  Company Number: FR-PFIZER INC-2008155328

PATIENT
  Age: 53 Year

DRUGS (8)
  1. LYRICA [Suspect]
     Indication: PAIN
     Dosage: 75 MG, 2X/DAY
     Route: 048
     Dates: start: 20081120, end: 20081215
  2. LYRICA [Suspect]
     Indication: NEURALGIA
  3. LYRICA [Suspect]
     Indication: RENAL CANCER METASTATIC
  4. LYRICA [Suspect]
     Indication: ANXIETY
  5. DI-ANTALVIC [Concomitant]
  6. ACENOCOUMAROL [Concomitant]
  7. VOGALENE [Concomitant]
     Route: 060
  8. ZOPHREN [Concomitant]

REACTIONS (2)
  - BREAST CANCER FEMALE [None]
  - DIPLOPIA [None]
